FAERS Safety Report 13524276 (Version 1)
Quarter: 2017Q2

REPORT INFORMATION
  Report Type: Spontaneous
  Country: US (occurrence: US)
  Receive Date: 20170508
  Receipt Date: 20170508
  Transmission Date: 20170830
  Serious: Yes (Other)
  Sender: FDA-Public Use
  Company Number: US-SA-2017SA081439

PATIENT
  Age: 44 Year
  Sex: Female

DRUGS (24)
  1. ARAVA [Suspect]
     Active Substance: LEFLUNOMIDE
     Route: 065
     Dates: start: 2011, end: 2011
  2. SULFASALAZINE. [Suspect]
     Active Substance: SULFASALAZINE
     Route: 065
  3. FOLIC ACID. [Suspect]
     Active Substance: FOLIC ACID
     Route: 065
  4. PREDNISONE. [Suspect]
     Active Substance: PREDNISONE
     Route: 065
  5. ENBREL [Suspect]
     Active Substance: ETANERCEPT
     Indication: RHEUMATOID ARTHRITIS
     Route: 065
     Dates: start: 2011, end: 2011
  6. HUMIRA [Suspect]
     Active Substance: ADALIMUMAB
     Route: 065
     Dates: start: 2011, end: 2011
  7. SULINDAC. [Suspect]
     Active Substance: SULINDAC
     Route: 065
  8. LEUCOVORIN. [Suspect]
     Active Substance: LEUCOVORIN
     Route: 065
  9. METHOTREXATE SODIUM. [Concomitant]
     Active Substance: METHOTREXATE SODIUM
     Route: 065
  10. METROGEL [Concomitant]
     Active Substance: METRONIDAZOLE
     Route: 065
  11. ORENCIA [Suspect]
     Active Substance: ABATACEPT
     Route: 065
  12. MELOXICAM. [Suspect]
     Active Substance: MELOXICAM
     Route: 065
  13. COLCHICINE. [Suspect]
     Active Substance: COLCHICINE
     Route: 065
  14. HYDROCODONE BITARTRATE/PARACETAMOL [Concomitant]
     Route: 065
  15. ALPRAZOLAM. [Concomitant]
     Active Substance: ALPRAZOLAM
     Route: 065
  16. ADVIL [Concomitant]
     Active Substance: IBUPROFEN
     Route: 065
  17. INDOMETHACIN. [Suspect]
     Active Substance: INDOMETHACIN
     Route: 065
  18. FOLIC ACID. [Suspect]
     Active Substance: FOLIC ACID
     Route: 065
  19. OMEPRAZOLE. [Concomitant]
     Active Substance: OMEPRAZOLE
     Route: 065
  20. CLARITIN [Concomitant]
     Active Substance: LORATADINE
     Route: 065
  21. SIMPONI [Suspect]
     Active Substance: GOLIMUMAB
     Route: 065
  22. XELJANZ [Concomitant]
     Active Substance: TOFACITINIB CITRATE
     Route: 065
     Dates: start: 201702
  23. METHOTREXATE. [Suspect]
     Active Substance: METHOTREXATE
     Route: 065
     Dates: start: 2012
  24. LEFLUNOMIDE. [Suspect]
     Active Substance: LEFLUNOMIDE
     Route: 065

REACTIONS (13)
  - Disability [Not Recovered/Not Resolved]
  - Psoriasis [Unknown]
  - Stress [Not Recovered/Not Resolved]
  - Injection site reaction [Unknown]
  - Drug intolerance [Unknown]
  - Dysuria [Unknown]
  - Rheumatoid arthritis [Not Recovered/Not Resolved]
  - Osteoarthritis [Unknown]
  - Alopecia [Not Recovered/Not Resolved]
  - Nodule [Not Recovered/Not Resolved]
  - Chondrocalcinosis pyrophosphate [Not Recovered/Not Resolved]
  - Synovitis [Unknown]
  - Nausea [Not Recovered/Not Resolved]

NARRATIVE: CASE EVENT DATE: 2011
